FAERS Safety Report 24563392 (Version 1)
Quarter: 2024Q4

REPORT INFORMATION
  Report Type: Spontaneous
  Country: CN (occurrence: CN)
  Receive Date: 20241030
  Receipt Date: 20241030
  Transmission Date: 20250114
  Serious: Yes (Death)
  Sender: Haleon PLC
  Company Number: CN-HALEON-2204944

PATIENT
  Age: 72 Year
  Sex: Male
  Weight: 70 kg

DRUGS (3)
  1. IBUPROFEN [Suspect]
     Active Substance: IBUPROFEN
     Indication: Increased need for sleep
     Route: 048
     Dates: start: 20240616, end: 20240616
  2. IBUPROFEN [Suspect]
     Active Substance: IBUPROFEN
     Indication: Postoperative analgesia
  3. IBUPROFEN [Suspect]
     Active Substance: IBUPROFEN
     Indication: Periorbital discomfort

REACTIONS (5)
  - Gastrointestinal haemorrhage [Fatal]
  - Pallor [Fatal]
  - Asthenia [Fatal]
  - Discoloured vomit [Fatal]
  - Hyperhidrosis [Fatal]

NARRATIVE: CASE EVENT DATE: 20240616
